FAERS Safety Report 7342488-2 (Version None)
Quarter: 2011Q1

REPORT INFORMATION
  Report Type: 
  Country: None (occurrence: None)
  Receive Date: 20110310
  Receipt Date: 20110303
  Transmission Date: 20110831
  Serious: No
  Sender: FDA-Public Use
  Company Number: US-PFIZER INC-2011047721

PATIENT
  Sex: Female
  Weight: 65.76 kg

DRUGS (6)
  1. ESTRADIOL [Suspect]
     Indication: MENOPAUSAL SYMPTOMS
     Dosage: 2 MG, 1X/DAY
     Route: 048
     Dates: start: 20100101, end: 20100501
  2. OGEN [Suspect]
     Indication: MENOPAUSAL SYMPTOMS
     Dosage: 0.75 MG, 1X/DAY
     Route: 048
     Dates: start: 20100701
  3. PREMARIN [Suspect]
     Dosage: UNK
  4. CENESTIN [Suspect]
     Indication: MENOPAUSAL SYMPTOMS
     Dosage: UNK
  5. PREMARIN [Suspect]
     Indication: MENOPAUSAL SYMPTOMS
     Dosage: 0.9 MG, 1X/DAY
     Route: 048
     Dates: start: 20090101, end: 20110228
  6. PREMARIN [Suspect]
     Dosage: 0.625 MG, 1X/DAY
     Route: 048
     Dates: start: 20000101, end: 20090101

REACTIONS (1)
  - RASH GENERALISED [None]
